FAERS Safety Report 22166837 (Version 2)
Quarter: 2023Q2

REPORT INFORMATION
  Report Type: Spontaneous
  Country: US (occurrence: US)
  Receive Date: 20230403
  Receipt Date: 20230427
  Transmission Date: 20230721
  Serious: Yes (Other)
  Sender: FDA-Public Use
  Company Number: US-PFIZER INC-202300141167

PATIENT
  Sex: Female
  Weight: 72.562 kg

DRUGS (2)
  1. PREMPRO [Suspect]
     Active Substance: ESTROGENS, CONJUGATED\MEDROXYPROGESTERONE ACETATE
     Indication: Hyperhidrosis
     Dosage: UNK, 0.45MG/20MG
  2. PREMPRO [Suspect]
     Active Substance: ESTROGENS, CONJUGATED\MEDROXYPROGESTERONE ACETATE
     Dosage: UNK 0.3MG/1.5MG
     Dates: start: 2016

REACTIONS (2)
  - Drug dependence [Unknown]
  - Off label use [Unknown]
